FAERS Safety Report 8597834-9 (Version None)
Quarter: 2012Q3

REPORT INFORMATION
  Report Type: 
  Country: None (occurrence: None)
  Receive Date: 20120816
  Receipt Date: 20120810
  Transmission Date: 20120928
  Serious: Yes (Death, Hospitalization, Other)
  Sender: FDA-Public Use
  Company Number: US-GENZYME-CLOF-1002260

PATIENT
  Sex: Female

DRUGS (2)
  1. CYTARABINE [Suspect]
     Indication: BONE MARROW CONDITIONING REGIMEN
     Dosage: UNK
     Route: 065
     Dates: start: 20120712
  2. CLOLAR [Suspect]
     Indication: BONE MARROW CONDITIONING REGIMEN
     Dosage: 52 MG/M2, DOSE LEVEL 3
     Route: 065
     Dates: start: 20120713, end: 20120717

REACTIONS (22)
  - PYREXIA [None]
  - BRAIN HERNIATION [None]
  - BACTERAEMIA [None]
  - MENTAL DISORDER [None]
  - HYPERREFLEXIA [None]
  - ASCITES [None]
  - MENINGITIS BACTERIAL [None]
  - PLEURAL EFFUSION [None]
  - BRAIN OEDEMA [None]
  - PUPILS UNEQUAL [None]
  - BLOOD PRESSURE SYSTOLIC DECREASED [None]
  - PUPIL FIXED [None]
  - ACUTE MYELOID LEUKAEMIA RECURRENT [None]
  - CONVULSION [None]
  - PUPILLARY REFLEX IMPAIRED [None]
  - BRAIN STEM HAEMORRHAGE [None]
  - STAPHYLOCOCCAL BACTERAEMIA [None]
  - RESPIRATORY FAILURE [None]
  - CEREBRAL ISCHAEMIA [None]
  - INTRACRANIAL PRESSURE INCREASED [None]
  - CEREBRAL ARTERY STENOSIS [None]
  - VENOOCCLUSIVE DISEASE [None]
